FAERS Safety Report 17687891 (Version 1)
Quarter: 2020Q2

REPORT INFORMATION
  Report Type: Spontaneous
  Country: US (occurrence: US)
  Receive Date: 20200417
  Receipt Date: 20200417
  Transmission Date: 20200714
  Serious: Yes (Hospitalization)
  Sender: FDA-Public Use
  Company Number: None

PATIENT
  Age: 63 Year
  Sex: Male
  Weight: 63 kg

DRUGS (1)
  1. LISINOPRIL (LISINOPRIL 10MG TAB) [Suspect]
     Active Substance: LISINOPRIL
     Indication: HYPERTENSION
     Dates: start: 20190529, end: 20190623

REACTIONS (6)
  - Angioedema [None]
  - Cough [None]
  - Enlarged uvula [None]
  - Dysphagia [None]
  - Lip swelling [None]
  - Pharyngeal swelling [None]

NARRATIVE: CASE EVENT DATE: 20190623
